FAERS Safety Report 10041651 (Version 1)
Quarter: 2014Q1

REPORT INFORMATION
  Report Type: Spontaneous
  Country: US (occurrence: US)
  Receive Date: 20140327
  Receipt Date: 20140327
  Transmission Date: 20141002
  Serious: Yes (Other)
  Sender: FDA-Public Use
  Company Number: US-B.I. PHARMACEUTICALS,INC./RIDGEFIELD-2014-BI-12193BP

PATIENT
  Sex: 0

DRUGS (5)
  1. SIFROL [Suspect]
     Indication: PRODUCT USED FOR UNKNOWN INDICATION
     Route: 065
  2. SELEGILINE [Concomitant]
     Route: 065
  3. CARBIDOPA + LEVODOPA [Concomitant]
     Route: 065
  4. SYMMETREL [Concomitant]
     Route: 065
  5. ALPRAZOLAM [Concomitant]
     Route: 065

REACTIONS (2)
  - Inappropriate antidiuretic hormone secretion [Unknown]
  - Delirium [Unknown]
